FAERS Safety Report 5048097-2 (Version None)
Quarter: 2006Q3

REPORT INFORMATION
  Report Type: 
  Country: None (occurrence: None)
  Receive Date: 20060705
  Receipt Date: 20060613
  Transmission Date: 20061208
  Serious: Yes (Death, Life-Threatening, Hospitalization, Disabling)
  Sender: FDA-Public Use
  Company Number: US200605001967

PATIENT
  Age: 73 Year
  Sex: Female
  Weight: 51.2 kg

DRUGS (9)
  1. TERIPARATIDE (TERIPARATIDE)PEN, DISPOSABLE [Suspect]
     Indication: OSTEOPOROSIS
     Dosage: 20 UG, DAILY (1/D), SUBCUTANEOUS
     Route: 058
     Dates: start: 20050222, end: 20051215
  2. FORTEO PEN (FORTEO PEN) PEN, DISPOSABLE [Concomitant]
  3. ZYRTEC [Concomitant]
  4. TRICOR [Concomitant]
  5. GLIPIZIDE [Concomitant]
  6. MOBIC [Concomitant]
  7. ACETAMINOPHEN [Concomitant]
  8. XANAX [Concomitant]
  9. HYDROCODONE BITARTRATE [Concomitant]

REACTIONS (4)
  - FEMUR FRACTURE [None]
  - PNEUMONIA [None]
  - TIBIA FRACTURE [None]
  - WEIGHT DECREASED [None]
